FAERS Safety Report 24283337 (Version 1)
Quarter: 2024Q3

REPORT INFORMATION
  Report Type: Spontaneous
  Country: US (occurrence: None)
  Receive Date: 20240903
  Receipt Date: 20240903
  Transmission Date: 20241016
  Serious: Yes (Other)
  Sender: Public
  Company Number: None

PATIENT
  Age: 66 Year
  Sex: Female
  Weight: 60.3 kg

DRUGS (1)
  1. GABAPENTIN [Suspect]
     Active Substance: GABAPENTIN
     Indication: Neuralgia
     Dosage: 1 CAPSULE ATBEDTIME ORAL
     Route: 048
     Dates: start: 20240823, end: 20240826

REACTIONS (7)
  - Thrombosis [None]
  - Somnolence [None]
  - Fatigue [None]
  - Nausea [None]
  - Balance disorder [None]
  - Abnormal behaviour [None]
  - Speech disorder [None]

NARRATIVE: CASE EVENT DATE: 20240823
